FAERS Safety Report 6168838-0 (Version None)
Quarter: 2009Q2

REPORT INFORMATION
  Report Type: 
  Country: None (occurrence: None)
  Receive Date: 20090424
  Receipt Date: 20090424
  Transmission Date: 20091009
  Serious: No
  Sender: FDA-Public Use
  Company Number: None

PATIENT
  Age: 76 Year
  Sex: Male
  Weight: 88.905 kg

DRUGS (2)
  1. EVOXAC [Suspect]
     Indication: DRY MOUTH
     Dosage: 30MG 3 CAP/DAY PO
     Route: 048
     Dates: start: 20080801, end: 20080815
  2. EVOXAC [Suspect]
     Indication: SJOGREN'S SYNDROME
     Dosage: 30MG 3 CAP/DAY PO
     Route: 048
     Dates: start: 20080801, end: 20080815

REACTIONS (3)
  - DRY MOUTH [None]
  - RASH ERYTHEMATOUS [None]
  - SJOGREN'S SYNDROME [None]
